FAERS Safety Report 6755981-8 (Version None)
Quarter: 2010Q2

REPORT INFORMATION
  Report Type: 
  Country: None (occurrence: None)
  Receive Date: 20100604
  Receipt Date: 20100601
  Transmission Date: 20101027
  Serious: Yes (Death)
  Sender: FDA-Public Use
  Company Number: PHHY2010US19564

PATIENT
  Sex: Female
  Weight: 57 kg

DRUGS (2)
  1. EXJADE [Suspect]
     Indication: MYELOFIBROSIS
     Dosage: 500 MG, BID
     Route: 048
     Dates: start: 20100319
  2. EXJADE [Suspect]
     Indication: BLOOD DISORDER

REACTIONS (3)
  - DEATH [None]
  - NAUSEA [None]
  - VOMITING [None]
